FAERS Safety Report 4582271-4 (Version None)
Quarter: 2005Q1

REPORT INFORMATION
  Report Type: 
  Country: None (occurrence: None)
  Receive Date: 20050127
  Receipt Date: 20040927
  Transmission Date: 20050727
  Serious: No
  Sender: FDA-Public Use
  Company Number: USA040979289

PATIENT
  Age: 10 Year
  Sex: Male
  Weight: 30 kg

DRUGS (1)
  1. STRATTERA [Suspect]
     Indication: ATTENTION DEFICIT/HYPERACTIVITY DISORDER
     Dosage: 40 MG IN THE EVENING
     Dates: start: 20040101

REACTIONS (8)
  - DRUG INEFFECTIVE [None]
  - FATIGUE [None]
  - FEELING ABNORMAL [None]
  - IMPULSIVE BEHAVIOUR [None]
  - INSOMNIA [None]
  - MOOD SWINGS [None]
  - PSYCHOMOTOR HYPERACTIVITY [None]
  - RESTLESS LEGS SYNDROME [None]
